FAERS Safety Report 8561133-1 (Version None)
Quarter: 2012Q3

REPORT INFORMATION
  Report Type: 
  Country: None (occurrence: None)
  Receive Date: 20120802
  Receipt Date: 20120724
  Transmission Date: 20120928
  Serious: Yes (Hospitalization, Other)
  Sender: FDA-Public Use
  Company Number: US-ASTRAZENECA-2011SE00896

PATIENT
  Age: 58 Year
  Sex: Male

DRUGS (1)
  1. SYMBICORT [Suspect]
     Dosage: 160/4.5 MCG UNK FREQUENCY
     Route: 055

REACTIONS (5)
  - ABSCESS LIMB [None]
  - ARTHROPOD BITE [None]
  - PNEUMONIA PRIMARY ATYPICAL [None]
  - DYSPNOEA [None]
  - DRUG DOSE OMISSION [None]
